FAERS Safety Report 13071139 (Version 4)
Quarter: 2017Q4

REPORT INFORMATION
  Report Type: Spontaneous
  Country: AU (occurrence: AU)
  Receive Date: 20161229
  Receipt Date: 20171201
  Transmission Date: 20180320
  Serious: Yes (Hospitalization)
  Sender: FDA-Public Use
  Company Number: AU-ROCHE-1873290

PATIENT
  Sex: Female

DRUGS (3)
  1. PEGASYS [Suspect]
     Active Substance: PEGINTERFERON ALFA-2A
     Indication: BEHCET^S SYNDROME
     Route: 058
  2. PEGASYS [Suspect]
     Active Substance: PEGINTERFERON ALFA-2A
     Route: 058
  3. PEGASYS [Suspect]
     Active Substance: PEGINTERFERON ALFA-2A
     Route: 058

REACTIONS (5)
  - Intentional product use issue [Unknown]
  - Diabetes mellitus [Unknown]
  - Off label use [Unknown]
  - Malaise [Unknown]
  - Liver function test increased [Recovered/Resolved]
